FAERS Safety Report 17231814 (Version 2)
Quarter: 2020Q1

REPORT INFORMATION
  Report Type: Spontaneous
  Country: JP (occurrence: JP)
  Receive Date: 20200103
  Receipt Date: 20200110
  Transmission Date: 20200409
  Serious: Yes (Life-Threatening, Other)
  Sender: FDA-Public Use
  Company Number: JP-PFIZER INC-2019562564

PATIENT
  Age: 60 Year
  Sex: Male

DRUGS (1)
  1. PACLITAXEL. [Suspect]
     Active Substance: PACLITAXEL
     Indication: VASCULAR STENT STENOSIS
     Dosage: UNK (APPLICATION BY A COATED BALLOON)

REACTIONS (1)
  - Coronary artery aneurysm [Recovered/Resolved]
